FAERS Safety Report 18994746 (Version 1)
Quarter: 2021Q1

REPORT INFORMATION
  Report Type: Spontaneous
  Country: US (occurrence: US)
  Receive Date: 20210310
  Receipt Date: 20210310
  Transmission Date: 20210420
  Serious: Yes (Other)
  Sender: FDA-Public Use
  Company Number: US-ORGANON-O2103USA001006

PATIENT
  Age: 58 Year
  Sex: Male

DRUGS (2)
  1. ASMANEX [Suspect]
     Active Substance: MOMETASONE FUROATE
     Indication: DYSPNOEA
     Dosage: UNK
     Dates: start: 2019
  2. ASMANEX [Suspect]
     Active Substance: MOMETASONE FUROATE
     Dosage: 1 INHALATION, TWICE A DAY (BID); 1 INHALATION IN THE MORNING ABOUT 9 AM AND IN THE EVENING ABOUT 9 P
     Dates: start: 2021

REACTIONS (4)
  - Product taste abnormal [Unknown]
  - Poor quality device used [Unknown]
  - Lung neoplasm malignant [Unknown]
  - Device malfunction [Unknown]

NARRATIVE: CASE EVENT DATE: 2019
